FAERS Safety Report 8253775-8 (Version None)
Quarter: 2012Q2

REPORT INFORMATION
  Report Type: 
  Country: None (occurrence: None)
  Receive Date: 20120402
  Receipt Date: 20120314
  Transmission Date: 20120825
  Serious: No
  Sender: FDA-Public Use
  Company Number: US-AMGEN-USASP2012016704

PATIENT
  Age: 48 Year
  Sex: Female

DRUGS (1)
  1. ENBREL [Suspect]
     Indication: RHEUMATOID ARTHRITIS
     Dosage: 50 MG, QWK
     Dates: start: 20010301

REACTIONS (10)
  - GASTROOESOPHAGEAL REFLUX DISEASE [None]
  - RASH ERYTHEMATOUS [None]
  - RASH PRURITIC [None]
  - COUGH [None]
  - GINGIVAL SWELLING [None]
  - FOREIGN BODY [None]
  - GINGIVAL PAIN [None]
  - NASOPHARYNGITIS [None]
  - TOOTHACHE [None]
  - PHARYNGEAL OEDEMA [None]
